FAERS Safety Report 18842936 (Version 2)
Quarter: 2021Q1

REPORT INFORMATION
  Report Type: Spontaneous
  Country: BR (occurrence: BR)
  Receive Date: 20210203
  Receipt Date: 20210210
  Transmission Date: 20210419
  Serious: Yes (Hospitalization)
  Sender: FDA-Public Use
  Company Number: BR-GE HEALTHCARE LIFE SCIENCES-2021CSU000517

PATIENT

DRUGS (4)
  1. VISIPAQUE [Suspect]
     Active Substance: IODIXANOL
     Indication: CRANIOTOMY
  2. ALLEGRA [Concomitant]
     Active Substance: FEXOFENADINE HYDROCHLORIDE
     Indication: ANTIALLERGIC THERAPY
     Dosage: 60MG, 12H AND 2HR PRIOR TO THE EXAM
     Dates: start: 20210117, end: 20210118
  3. VISIPAQUE [Suspect]
     Active Substance: IODIXANOL
     Indication: COMPUTERISED TOMOGRAM HEAD
     Dosage: 65 ML, VIA INJECTOR, SINGLE
     Route: 042
     Dates: start: 20210118, end: 20210118
  4. METICORTEN [Concomitant]
     Active Substance: PREDNISONE
     Indication: ANTIALLERGIC THERAPY
     Dosage: 20MG, 12 HR AND 2 HR PRIOR TO THE EXAM
     Dates: start: 20210117, end: 20210118

REACTIONS (1)
  - Hyperaemia [Recovered/Resolved]

NARRATIVE: CASE EVENT DATE: 20210119
